FAERS Safety Report 5381270-2 (Version None)
Quarter: 2007Q3

REPORT INFORMATION
  Report Type: 
  Country: None (occurrence: None)
  Receive Date: 20070702
  Receipt Date: 20060823
  Transmission Date: 20080115
  Serious: Yes (Hospitalization)
  Sender: FDA-Public Use
  Company Number: SUS1-2004-00122

PATIENT
  Age: 56 Year
  Sex: Female

DRUGS (1)
  1. PENTASA [Suspect]
     Indication: CROHN'S DISEASE

REACTIONS (3)
  - ARTHRALGIA [None]
  - MYALGIA [None]
  - PYREXIA [None]
